FAERS Safety Report 6964859-6 (Version None)
Quarter: 2010Q3

REPORT INFORMATION
  Report Type: 
  Country: None (occurrence: None)
  Receive Date: 20100903
  Receipt Date: 20100823
  Transmission Date: 20110219
  Serious: Yes (Other)
  Sender: FDA-Public Use
  Company Number: US-ALEXION-A201001077

PATIENT
  Sex: Male

DRUGS (3)
  1. SOLIRIS [Suspect]
     Indication: PAROXYSMAL NOCTURNAL HAEMOGLOBINURIA
     Dosage: 900 MG, QW X 4
     Dates: start: 20100107, end: 20100101
  2. SOLIRIS [Suspect]
     Dosage: 1200 MG, QW
     Route: 042
     Dates: start: 20100101
  3. ANTICOAGULANT THERAPY [Suspect]
     Dosage: UNK
     Dates: end: 20100101

REACTIONS (2)
  - CYSTITIS HAEMORRHAGIC [None]
  - VASCULITIS [None]
